FAERS Safety Report 10644953 (Version 2)
Quarter: 2014Q4

REPORT INFORMATION
  Report Type: Report from Study
  Country: US (occurrence: US)
  Receive Date: 20141211
  Receipt Date: 20141211
  Transmission Date: 20150529
  Serious: No
  Sender: FDA-Public Use
  Company Number: US-009507513-0205USA03005

PATIENT
  Age: 31 Year
  Sex: Female

DRUGS (11)
  1. LAMIVUDINE AND ZIDOVUDINE [Suspect]
     Active Substance: LAMIVUDINE\ZIDOVUDINE
  2. VIRACEPT [Suspect]
     Active Substance: NELFINAVIR MESYLATE
     Dosage: UNK
     Route: 048
  3. NORVIR [Suspect]
     Active Substance: RITONAVIR
     Dosage: UNK
     Route: 048
     Dates: start: 19990602
  4. LOPERAMIDE HYDROCHLORIDE. [Concomitant]
     Active Substance: LOPERAMIDE HYDROCHLORIDE
  5. ZIDOVUDINE. [Suspect]
     Active Substance: ZIDOVUDINE
  6. SULFAMETHOXAZOLE (+) TRIMETHOPRIM [Concomitant]
     Active Substance: SULFAMETHOXAZOLE\TRIMETHOPRIM
  7. ERYTHROMYCIN. [Concomitant]
     Active Substance: ERYTHROMYCIN
  8. CRIXIVAN [Suspect]
     Active Substance: INDINAVIR SULFATE
     Dosage: UNK
     Route: 048
     Dates: start: 19990602
  9. VIDEX [Suspect]
     Active Substance: DIDANOSINE
     Dosage: UNK
     Route: 048
     Dates: start: 19990602
  10. RESCRIPTOR [Suspect]
     Active Substance: DELAVIRDINE MESYLATE
     Dosage: 1200 MG, QD
     Route: 048
     Dates: start: 19990602
  11. VITAMINS (UNSPECIFIED) [Concomitant]
     Active Substance: VITAMINS

REACTIONS (2)
  - Campylobacter gastroenteritis [Unknown]
  - Maternal exposure timing unspecified [Recovered/Resolved]

NARRATIVE: CASE EVENT DATE: 199907
